FAERS Safety Report 21374505 (Version 2)
Quarter: 2022Q3

REPORT INFORMATION
  Report Type: Spontaneous
  Country: US (occurrence: US)
  Receive Date: 20220926
  Receipt Date: 20220926
  Transmission Date: 20221027
  Serious: Yes (Other)
  Sender: FDA-Public Use
  Company Number: US-ALLERGAN-2222308US

PATIENT
  Sex: Male

DRUGS (2)
  1. DURYSTA [Suspect]
     Active Substance: BIMATOPROST
     Indication: Glaucoma
     Dosage: 0.1 MG, SINGLE
     Route: 031
     Dates: start: 20220614, end: 20220614
  2. DURYSTA [Suspect]
     Active Substance: BIMATOPROST
     Indication: Glaucoma
     Dosage: 0.1 MG, SINGLE
     Route: 031
     Dates: start: 20220621, end: 20220621

REACTIONS (2)
  - Ocular hypertension [Not Recovered/Not Resolved]
  - Eye inflammation [Not Recovered/Not Resolved]
